FAERS Safety Report 18346073 (Version 1)
Quarter: 2020Q4

REPORT INFORMATION
  Report Type: Spontaneous
  Country: FR (occurrence: FR)
  Receive Date: 20201005
  Receipt Date: 20201005
  Transmission Date: 20210114
  Serious: No
  Sender: FDA-Public Use
  Company Number: FR-JAZZ-2020-FR-005695

PATIENT

DRUGS (1)
  1. SUNOSI [Suspect]
     Active Substance: SOLRIAMFETOL
     Indication: NARCOLEPSY
     Dosage: ()
     Route: 048
     Dates: start: 20200326, end: 20200326

REACTIONS (4)
  - Medication error [Recovered/Resolved]
  - Hyperhidrosis [Recovered/Resolved]
  - Palpitations [Recovered/Resolved]
  - Chest discomfort [Recovered/Resolved]

NARRATIVE: CASE EVENT DATE: 20200326
